FAERS Safety Report 12081689 (Version 1)
Quarter: 2016Q1

REPORT INFORMATION
  Report Type: Spontaneous
  Country: US (occurrence: US)
  Receive Date: 20160216
  Receipt Date: 20160216
  Transmission Date: 20160526
  Serious: No
  Sender: FDA-Public Use
  Company Number: US-PERRIGO-15US005838

PATIENT
  Age: 9 Year
  Sex: Male
  Weight: 35.37 kg

DRUGS (4)
  1. PHENYLEPHRINE HYDROCHLORIDE 10 MG 094 [Suspect]
     Active Substance: PHENYLEPHRINE HYDROCHLORIDE
     Indication: ACCIDENTAL EXPOSURE TO PRODUCT
     Dosage: 10 MG, SINGLE
     Route: 048
     Dates: start: 20150605, end: 20150605
  2. CETIRIZINE HYDROCHLORIDE. [Suspect]
     Active Substance: CETIRIZINE HYDROCHLORIDE
     Indication: ACCIDENTAL EXPOSURE TO PRODUCT
     Dosage: 20 MG, SINGLE
     Route: 048
     Dates: start: 20150605, end: 20150605
  3. IBUPROFEN. [Suspect]
     Active Substance: IBUPROFEN
     Indication: ACCIDENTAL EXPOSURE TO PRODUCT
     Dosage: 900 MG, SINGLE
     Route: 048
     Dates: start: 20150605, end: 20150605
  4. DIPHENHYDRAMINE HYDROCHLORIDE 2.5 MG/ML CHERRY 379 [Suspect]
     Active Substance: DIPHENHYDRAMINE HYDROCHLORIDE
     Indication: ACCIDENTAL EXPOSURE TO PRODUCT
     Dosage: 25 MG, SINGLE
     Route: 048
     Dates: start: 20150605, end: 20150605

REACTIONS (1)
  - Accidental exposure to product [Recovered/Resolved]

NARRATIVE: CASE EVENT DATE: 20150605
